FAERS Safety Report 18292189 (Version 1)
Quarter: 2020Q3

REPORT INFORMATION
  Report Type: Spontaneous
  Country: JP (occurrence: JP)
  Receive Date: 20200922
  Receipt Date: 20200922
  Transmission Date: 20201103
  Serious: Yes (Death, Other)
  Sender: FDA-Public Use
  Company Number: JP-TEVA-2020-JP-005933J

PATIENT
  Age: 8 Decade
  Sex: Male

DRUGS (2)
  1. LINTON [Concomitant]
     Active Substance: HALOPERIDOL
     Indication: RESTLESSNESS
     Route: 065
  2. CERCINE [Suspect]
     Active Substance: DIAZEPAM
     Indication: SEDATION
     Route: 042
     Dates: start: 2012

REACTIONS (8)
  - Incorrect dose administered [Unknown]
  - Pneumonia [Fatal]
  - Cerebral ischaemia [Unknown]
  - Product use in unapproved indication [Unknown]
  - Circulatory collapse [Unknown]
  - Oedema [Unknown]
  - Multiple organ dysfunction syndrome [Fatal]
  - Cardio-respiratory arrest [Unknown]

NARRATIVE: CASE EVENT DATE: 2012
